FAERS Safety Report 4308103-7 (Version None)
Quarter: 2004Q1

REPORT INFORMATION
  Report Type: 
  Country: None (occurrence: None)
  Receive Date: 20040226
  Receipt Date: 20030723
  Transmission Date: 20041129
  Serious: Yes (Hospitalization)
  Sender: FDA-Public Use
  Company Number: 2003169301US

PATIENT

DRUGS (2)
  1. CELEBREX [Suspect]
     Dosage: UNK, UNK; ORAL
     Route: 048
  2. ACTOS [Suspect]
     Dosage: UNK, UNK; ORAL
     Route: 048

REACTIONS (1)
  - OEDEMA [None]
